FAERS Safety Report 5810212-8 (Version None)
Quarter: 2008Q3

REPORT INFORMATION
  Report Type: 
  Country: None (occurrence: None)
  Receive Date: 20080715
  Receipt Date: 20071112
  Transmission Date: 20090109
  Serious: No
  Sender: FDA-Public Use
  Company Number: A0693907A

PATIENT
  Age: 41 Year
  Sex: Female

DRUGS (5)
  1. IMITREX [Suspect]
     Indication: MIGRAINE
     Dosage: 25MG AS REQUIRED
     Route: 048
     Dates: start: 20071105
  2. IMITREX [Suspect]
     Route: 058
     Dates: start: 20071105
  3. SINGULAIR [Concomitant]
  4. CLARINEX [Concomitant]
  5. VICOPROFEN [Concomitant]

REACTIONS (7)
  - BLEPHAROSPASM [None]
  - DRUG INEFFECTIVE [None]
  - IRIS HYPERPIGMENTATION [None]
  - MIGRAINE [None]
  - PAIN IN EXTREMITY [None]
  - STOMACH DISCOMFORT [None]
  - TREMOR [None]
